FAERS Safety Report 5706093-3 (Version None)
Quarter: 2008Q2

REPORT INFORMATION
  Report Type: 
  Country: None (occurrence: None)
  Receive Date: 20080415
  Receipt Date: 20080403
  Transmission Date: 20081010
  Serious: Yes (Other)
  Sender: FDA-Public Use
  Company Number: BR-PFIZER INC-2008028131

PATIENT
  Age: 42 Year
  Sex: Female
  Weight: 58 kg

DRUGS (13)
  1. DEPO-PROVERA SUSPENSION/INJ [Suspect]
     Indication: OFF LABEL USE
     Dates: start: 20080201, end: 20080201
  2. DEPO-PROVERA SUSPENSION/INJ [Suspect]
     Indication: MENSTRUAL DISCOMFORT
  3. DEPO-PROVERA SUSPENSION/INJ [Suspect]
     Indication: PREMENSTRUAL SYNDROME
  4. HALDOL [Concomitant]
  5. FLUOXETINE [Concomitant]
     Indication: DEPRESSION
  6. RIVOTRIL [Concomitant]
  7. PREDNISONE [Concomitant]
  8. CAPTOPRIL [Concomitant]
     Indication: HYPERTENSION
  9. ATENOL [Concomitant]
     Indication: HYPERTENSION
  10. CLORANA [Concomitant]
     Indication: HYPERTENSION
  11. PHENYTOIN [Concomitant]
     Indication: CONVULSION
  12. IMIPRAMINE [Concomitant]
     Indication: DEPRESSION
  13. HOMEOPATHIC PREPARATION [Concomitant]

REACTIONS (8)
  - DEPRESSION [None]
  - DIZZINESS [None]
  - DRUG INEFFECTIVE FOR UNAPPROVED INDICATION [None]
  - HEART RATE INCREASED [None]
  - INSOMNIA [None]
  - PYREXIA [None]
  - SYSTEMIC LUPUS ERYTHEMATOSUS [None]
  - TREMOR [None]
